FAERS Safety Report 10535177 (Version 1)
Quarter: 2014Q4

REPORT INFORMATION
  Report Type: Spontaneous
  Country: JP (occurrence: JP)
  Receive Date: 20141022
  Receipt Date: 20141022
  Transmission Date: 20150529
  Serious: Yes (Hospitalization)
  Sender: FDA-Public Use
  Company Number: PHHY2014JP133879

PATIENT
  Age: 61 Year
  Sex: Male

DRUGS (4)
  1. TRICHLORMETHIAZIDE [Suspect]
     Active Substance: TRICHLORMETHIAZIDE
     Indication: CARDIAC FAILURE CONGESTIVE
     Dosage: 1 MG, PER DAY
     Route: 065
  2. LOSARTAN [Concomitant]
     Active Substance: LOSARTAN
     Indication: CARDIAC FAILURE CONGESTIVE
     Dosage: 50 MG, PER DAY
     Route: 065
  3. FUROSEMIDE. [Suspect]
     Active Substance: FUROSEMIDE
     Indication: CARDIAC FAILURE CONGESTIVE
     Dosage: 40 MG, PER DAY
     Route: 042
  4. METILDIGOXIN [Concomitant]
     Active Substance: METILDIGOXIN
     Indication: CARDIAC FAILURE CONGESTIVE
     Dosage: 0.1 MG, PER DAY
     Route: 065

REACTIONS (21)
  - Metabolic acidosis [Unknown]
  - Orthopnoea [Unknown]
  - Oedema [Unknown]
  - Blood pressure decreased [Unknown]
  - Dilatation ventricular [Unknown]
  - Hyporeflexia [Unknown]
  - Nystagmus [Recovered/Resolved]
  - Cardiac failure [Unknown]
  - Inferior vena cava dilatation [Unknown]
  - Lactic acidosis [Unknown]
  - Myalgia [Recovered/Resolved]
  - Pain [Unknown]
  - Dyspnoea [Unknown]
  - Electrocardiogram ST segment depression [Unknown]
  - Vitamin B1 deficiency [Unknown]
  - Shoshin beriberi [Unknown]
  - Tricuspid valve incompetence [Unknown]
  - Wernicke^s encephalopathy [Unknown]
  - Acute kidney injury [Unknown]
  - Vascular resistance systemic [Unknown]
  - Jugular vein distension [Unknown]
